FAERS Safety Report 18569549 (Version 1)
Quarter: 2020Q4

REPORT INFORMATION
  Report Type: Spontaneous
  Country: US (occurrence: US)
  Receive Date: 20201202
  Receipt Date: 20201202
  Transmission Date: 20210114
  Serious: No
  Sender: FDA-Public Use
  Company Number: None

PATIENT
  Age: 96 Year
  Sex: Female
  Weight: 86.6 kg

DRUGS (1)
  1. EYLEA [Suspect]
     Active Substance: AFLIBERCEPT
     Indication: NEOVASCULAR AGE-RELATED MACULAR DEGENERATION
     Dosage: ?          OTHER FREQUENCY:ONCE;?
     Route: 047

REACTIONS (6)
  - Ocular procedural complication [None]
  - Syringe issue [None]
  - Blindness unilateral [None]
  - Device malfunction [None]
  - Eye complication associated with device [None]
  - Endophthalmitis [None]

NARRATIVE: CASE EVENT DATE: 20201112
